FAERS Safety Report 10552783 (Version 2)
Quarter: 2014Q4

REPORT INFORMATION
  Report Type: Spontaneous
  Country: JP (occurrence: JP)
  Receive Date: 20141029
  Receipt Date: 20141120
  Transmission Date: 20150529
  Serious: Yes (Hospitalization, Other)
  Sender: FDA-Public Use
  Company Number: JP-SA-2014SA146174

PATIENT
  Age: 72 Year
  Sex: Male

DRUGS (3)
  1. S-1 [Suspect]
     Active Substance: GIMERACIL\OTERACIL\TEGAFUR
     Indication: GASTRIC CANCER
     Dosage: EVERY 4 WEEK, DAY 1-14
     Route: 041
  2. CISPLATIN. [Suspect]
     Active Substance: CISPLATIN
     Indication: GASTRIC CANCER
     Dosage: Q4W, ON DAY 1 AND DAY 15
     Route: 041
  3. DOCETAXEL. [Suspect]
     Active Substance: DOCETAXEL
     Indication: GASTRIC CANCER
     Dosage: Q4W, ON DAY 1 AND 15
     Route: 041

REACTIONS (17)
  - Feeling hot [Recovered/Resolved]
  - Infective aortitis [Recovered/Resolved]
  - Peripheral swelling [Recovered/Resolved]
  - Bacteraemia [Recovered/Resolved]
  - Thrombophlebitis [Recovered/Resolved]
  - Aortic aneurysm [Recovered/Resolved]
  - Induration [Recovered/Resolved]
  - Staphylococcus test positive [Recovered/Resolved]
  - White blood cell count decreased [Unknown]
  - Computerised tomogram abnormal [Recovered/Resolved]
  - Bone marrow failure [Unknown]
  - Device related infection [Recovered/Resolved]
  - C-reactive protein increased [Recovered/Resolved]
  - Erythema [Recovered/Resolved]
  - Pain [Recovered/Resolved]
  - Platelet count decreased [Unknown]
  - Pyrexia [Recovered/Resolved]
